FAERS Safety Report 11178917 (Version 2)
Quarter: 2015Q2

REPORT INFORMATION
  Report Type: Spontaneous
  Country: US (occurrence: None)
  Receive Date: 20150604
  Receipt Date: 20150622
  Transmission Date: 20150821
  Serious: No
  Sender: FDA-Public Use
  Company Number: QR88400-03

PATIENT
  Age: 53 Year
  Sex: Female

DRUGS (1)
  1. GAMMAPLEX [Suspect]
     Active Substance: HUMAN IMMUNOGLOBULIN G
     Dates: start: 201409, end: 201411

REACTIONS (6)
  - Arthralgia [None]
  - Laboratory test abnormal [None]
  - Sinusitis [None]
  - Malaise [None]
  - Candida infection [None]
  - Joint swelling [None]
